FAERS Safety Report 6072772-4 (Version None)
Quarter: 2009Q1

REPORT INFORMATION
  Report Type: 
  Country: None (occurrence: None)
  Receive Date: 20090210
  Receipt Date: 20090129
  Transmission Date: 20090719
  Serious: Yes (Life-Threatening)
  Sender: FDA-Public Use
  Company Number: GR-ELI_LILLY_AND_COMPANY-GR200901002357

PATIENT
  Age: 70 Year
  Sex: Male

DRUGS (5)
  1. CYMBALTA [Suspect]
     Indication: DEPRESSION
     Dosage: 60 MG, DAILY (1/D)
     Route: 048
     Dates: start: 20080808
  2. LYRICA [Concomitant]
     Indication: DEPRESSION
     Dosage: 75 MG, 2/D
     Route: 048
     Dates: start: 20080808
  3. REMERON                                 /AUS/ [Concomitant]
     Indication: DEPRESSION
     Dosage: 30 MG, DAILY (1/D)
     Route: 048
     Dates: start: 20080808
  4. LIBRAX [Concomitant]
     Indication: DEPRESSION
     Dosage: UNK UNK HALF A TABLE EACH TIME
     Route: 048
     Dates: start: 20060101
  5. XANAX [Concomitant]
     Indication: DEPRESSION
     Dosage: UNK UNK, 3/D
     Route: 048
     Dates: start: 20060101

REACTIONS (1)
  - HAEMATOCRIT DECREASED [None]
